FAERS Safety Report 20123106 (Version 2)
Quarter: 2021Q4

REPORT INFORMATION
  Report Type: Report from Study
  Country: US (occurrence: US)
  Receive Date: 20211129
  Receipt Date: 20211209
  Transmission Date: 20220303
  Serious: Yes (Death, Other)
  Sender: FDA-Public Use
  Company Number: US-ACADIA PHARMACEUTICALS INC.-ACA-2021-PIM-004099

PATIENT
  Age: 84 Year
  Sex: Female

DRUGS (7)
  1. NUPLAZID [Suspect]
     Active Substance: PIMAVANSERIN TARTRATE
     Indication: Parkinson^s disease
     Dosage: 44 MILLIGRAM, QD
     Route: 048
     Dates: start: 20190212
  2. NUPLAZID [Suspect]
     Active Substance: PIMAVANSERIN TARTRATE
     Indication: Parkinson^s disease
     Dosage: 44 MILLIGRAM, QD
     Route: 048
     Dates: start: 20190212
  3. BACTRIM DS [Concomitant]
     Active Substance: SULFAMETHOXAZOLE\TRIMETHOPRIM
     Dosage: 800-160
  4. CICLOPIROX [Concomitant]
     Active Substance: CICLOPIROX
     Dosage: 8%
  5. LYRICA [Concomitant]
     Active Substance: PREGABALIN
     Dosage: 25 MILLIGRAM
  6. LEXAPRO [Concomitant]
     Active Substance: ESCITALOPRAM OXALATE
     Dosage: 20 MILLIGRAM
     Dates: start: 20200716
  7. RISPERDAL [Concomitant]
     Active Substance: RISPERIDONE
     Dosage: 4 MILLIGRAM
     Dates: start: 20200102

REACTIONS (3)
  - Death [Fatal]
  - Therapeutic product effect incomplete [Unknown]
  - Prescribed overdose [Unknown]

NARRATIVE: CASE EVENT DATE: 20190212
